FAERS Safety Report 25541515 (Version 1)
Quarter: 2025Q3

REPORT INFORMATION
  Report Type: Spontaneous
  Country: US (occurrence: US)
  Receive Date: 20250711
  Receipt Date: 20250711
  Transmission Date: 20251020
  Serious: No
  Sender: GLAXOSMITHKLINE
  Company Number: US-GSK-US2025AMR087415

PATIENT
  Sex: Female

DRUGS (1)
  1. BENLYSTA [Suspect]
     Active Substance: BELIMUMAB
     Indication: Product used for unknown indication
     Dosage: 200 MG, WE,

REACTIONS (5)
  - Photosensitivity reaction [Unknown]
  - Rash [Unknown]
  - Fatigue [Unknown]
  - Vomiting [Unknown]
  - Condition aggravated [Unknown]
